FAERS Safety Report 15391220 (Version 1)
Quarter: 2018Q3

REPORT INFORMATION
  Report Type: Report from Study
  Country: US (occurrence: US)
  Receive Date: 20180917
  Receipt Date: 20180917
  Transmission Date: 20181010
  Serious: Yes (Other)
  Sender: FDA-Public Use
  Company Number: US-TEVA-2018-US-954888

PATIENT
  Sex: Male

DRUGS (2)
  1. AUSTEDO [Suspect]
     Active Substance: DEUTETRABENAZINE
     Dosage: 24 MILLIGRAM DAILY;
  2. AUSTEDO [Suspect]
     Active Substance: DEUTETRABENAZINE
     Indication: HUNTINGTON^S DISEASE
     Dosage: NEW TITRATING PATIENT
     Dates: start: 20180206

REACTIONS (7)
  - Depressed mood [Unknown]
  - Suicide threat [Unknown]
  - Vertigo [Unknown]
  - Fall [Unknown]
  - Condition aggravated [Unknown]
  - Bone contusion [Unknown]
  - Suicidal ideation [Unknown]
